FAERS Safety Report 8888625 (Version 2)
Quarter: 2012Q4

REPORT INFORMATION
  Report Type: 
  Country: JP (occurrence: JP)
  Receive Date: 20121106
  Receipt Date: 20121112
  Transmission Date: 20130627
  Serious: Yes (Hospitalization)
  Sender: FDA-Public Use
  Company Number: JP-PFIZER INC-2012274018

PATIENT
  Age: 70 Year
  Sex: Male

DRUGS (6)
  1. CYTOTEC [Suspect]
     Indication: PROPHYLAXIS AGAINST GASTROINTESTINAL ULCER
     Dosage: 200 ug, 2x/day
     Route: 048
     Dates: start: 20120809, end: 20120916
  2. VOLTAREN [Suspect]
     Indication: LOW BACK PAIN
     Dosage: 37.5 mg, 2x/day
     Route: 048
     Dates: start: 20120809, end: 20120916
  3. VOLTAREN [Suspect]
     Indication: OSTEOARTHRITIS OF LUMBAR SPINE
  4. LYRICA [Concomitant]
     Indication: ANALGESIA
     Dosage: 75 mg, 1x/day
     Route: 048
     Dates: start: 20120809, end: 20120916
  5. XYLOCAINE 1% [Concomitant]
     Indication: ANESTHESIA
     Dosage: 4 ml, UNK
     Dates: start: 20120809, end: 20120823
  6. KENACORT [Concomitant]
     Indication: ANESTHESIA
     Dosage: 10 mg, UNK
     Dates: start: 20120809, end: 20120823

REACTIONS (1)
  - Duodenal ulcer [Recovered/Resolved]
